FAERS Safety Report 5913366-8 (Version None)
Quarter: 2008Q4

REPORT INFORMATION
  Report Type: 
  Country: None (occurrence: None)
  Receive Date: 20081009
  Receipt Date: 20081002
  Transmission Date: 20090506
  Serious: Yes (Other)
  Sender: FDA-Public Use
  Company Number: PHEH2008US08789

PATIENT
  Sex: Female
  Weight: 61.4 kg

DRUGS (4)
  1. FEMARA [Suspect]
     Indication: BREAST CANCER
  2. DIOVAN HCT [Concomitant]
     Indication: HYPERTENSION
     Dosage: 80/12.5 ONE DAILY
     Route: 048
     Dates: start: 20040101
  3. SYNTHROID [Concomitant]
     Indication: HYPOTHYROIDISM
     Dosage: 125 MCG DAILY
     Route: 048
     Dates: start: 19830101
  4. CELEBREX [Concomitant]
     Indication: RHEUMATOID ARTHRITIS
     Dosage: 200 MG ONE CAP TWICE PER WEEK
     Route: 048
     Dates: start: 20070101

REACTIONS (9)
  - ARTHRALGIA [None]
  - ASTHENIA [None]
  - FATIGUE [None]
  - FINGER DEFORMITY [None]
  - HEADACHE [None]
  - MYALGIA [None]
  - PAIN [None]
  - PAIN IN EXTREMITY [None]
  - RHEUMATOID ARTHRITIS [None]
